FAERS Safety Report 5742307-1 (Version None)
Quarter: 2008Q2

REPORT INFORMATION
  Report Type: 
  Country: None (occurrence: None)
  Receive Date: 20080514
  Receipt Date: 20080514
  Transmission Date: 20081010
  Serious: Yes (Death, Hospitalization, Other)
  Sender: FDA-Public Use
  Company Number: None

PATIENT
  Age: 63 Year
  Sex: Female
  Weight: 104.3273 kg

DRUGS (1)
  1. DIGITEK 125MCG BERTEK PHARM [Suspect]
     Indication: ATRIAL FIBRILLATION
     Dosage: ONE TABLET DAILY PO
     Route: 048
     Dates: start: 20060601, end: 20080301

REACTIONS (4)
  - DIZZINESS [None]
  - HAEMORRHAGE INTRACRANIAL [None]
  - HEADACHE [None]
  - NAUSEA [None]
